FAERS Safety Report 21907265 (Version 5)
Quarter: 2025Q1

REPORT INFORMATION
  Report Type: Spontaneous
  Country: FR (occurrence: FR)
  Receive Date: 20230125
  Receipt Date: 20250313
  Transmission Date: 20250408
  Serious: Yes (Disabling, Other)
  Sender: BAUSCH AND LOMB
  Company Number: FR-LEO Pharma-348464

PATIENT
  Age: 58 Year
  Sex: Female
  Weight: 63 kg

DRUGS (2)
  1. BRODALUMAB [Suspect]
     Active Substance: BRODALUMAB
     Indication: Dermatitis atopic
     Route: 058
     Dates: start: 20220813, end: 20220813
  2. BRODALUMAB [Suspect]
     Active Substance: BRODALUMAB
     Indication: Palmoplantar pustulosis

REACTIONS (16)
  - Blepharitis [Not Recovered/Not Resolved]
  - Blepharospasm [Not Recovered/Not Resolved]
  - Punctate keratitis [Not Recovered/Not Resolved]
  - Visual acuity reduced [Not Recovered/Not Resolved]
  - Conjunctivitis [Not Recovered/Not Resolved]
  - Ageusia [Not Recovered/Not Resolved]
  - Dermatitis atopic [Unknown]
  - Cataract operation [Unknown]
  - Ocular discomfort [Unknown]
  - Eye discharge [Unknown]
  - Eye pruritus [Unknown]
  - Eye pain [Unknown]
  - Ocular rosacea [Unknown]
  - Ear infection [Not Recovered/Not Resolved]
  - Rhinitis [Not Recovered/Not Resolved]
  - Product use in unapproved indication [Unknown]

NARRATIVE: CASE EVENT DATE: 20220813
